FAERS Safety Report 16977420 (Version 2)
Quarter: 2019Q4

REPORT INFORMATION
  Report Type: Report from Study
  Country: GR (occurrence: GR)
  Receive Date: 20191031
  Receipt Date: 20191121
  Transmission Date: 20200122
  Serious: Yes (Death, Hospitalization)
  Sender: FDA-Public Use
  Company Number: GR-ROCHE-2448772

PATIENT
  Age: 77 Year
  Sex: Male

DRUGS (1)
  1. ATEZOLIZUMAB. [Suspect]
     Active Substance: ATEZOLIZUMAB
     Indication: SMALL CELL LUNG CANCER
     Dosage: 6 CYCLES
     Route: 065

REACTIONS (6)
  - Hepatic failure [Fatal]
  - Hyperthyroidism [Unknown]
  - Gastritis [Unknown]
  - Hypokalaemia [Unknown]
  - Oesophagitis [Unknown]
  - Myalgia [Unknown]

NARRATIVE: CASE EVENT DATE: 20191007
